FAERS Safety Report 9444211 (Version 1)
Quarter: 2013Q3

REPORT INFORMATION
  Report Type: Spontaneous
  Country: US (occurrence: None)
  Receive Date: 20130806
  Receipt Date: 20130806
  Transmission Date: 20140515
  Serious: Yes (Life-Threatening)
  Sender: FDA-Public Use
  Company Number: None

PATIENT
  Age: 89 Year
  Sex: Female
  Weight: 45.36 kg

DRUGS (1)
  1. BENZONATE [Suspect]
     Indication: COUGH
     Dosage: 1 CAP 3X DAILY
     Dates: start: 20130727

REACTIONS (2)
  - Chest discomfort [None]
  - Discomfort [None]
